FAERS Safety Report 14456691 (Version 1)
Quarter: 2018Q1

REPORT INFORMATION
  Report Type: Spontaneous
  Country: US (occurrence: US)
  Receive Date: 20180129
  Receipt Date: 20180129
  Transmission Date: 20180509
  Serious: No
  Sender: FDA-Public Use
  Company Number: None

PATIENT
  Age: 75 Year
  Sex: Female
  Weight: 61.23 kg

DRUGS (14)
  1. NABUMETONE GENERIC FOR RELAFEN 500MG BID [Suspect]
     Active Substance: NABUMETONE
     Indication: SCIATICA
     Route: 048
     Dates: start: 20170731, end: 20170806
  2. NABUMETONE GENERIC FOR RELAFEN 500MG BID [Suspect]
     Active Substance: NABUMETONE
     Indication: SPONDYLOLISTHESIS
     Route: 048
     Dates: start: 20170731, end: 20170806
  3. ECHINACEA [Concomitant]
     Active Substance: ECHINACEA, UNSPECIFIED
  4. OMEGA-3 FISH OIL [Concomitant]
     Active Substance: FISH OIL\OMEGA-3 FATTY ACIDS
  5. TYLENOL [Concomitant]
     Active Substance: ACETAMINOPHEN
  6. BACLOFEN. [Concomitant]
     Active Substance: BACLOFEN
  7. TRIAMCINOLONE ACETONIDE. [Concomitant]
     Active Substance: TRIAMCINOLONE ACETONIDE
  8. NABUMETONE GENERIC FOR RELAFEN 500MG BID [Suspect]
     Active Substance: NABUMETONE
     Indication: SPINAL COLUMN STENOSIS
     Route: 048
     Dates: start: 20170731, end: 20170806
  9. CARNIVORA CAPS [Concomitant]
  10. RING RELIEF DROPS [Concomitant]
  11. FLEXALL CREAM [Concomitant]
  12. HOMEOPATHIC LYMPH DRAINAGE DROPS [Concomitant]
  13. NABUMETONE GENERIC FOR RELAFEN 500MG BID [Suspect]
     Active Substance: NABUMETONE
     Indication: OSTEOARTHRITIS
     Route: 048
     Dates: start: 20170731, end: 20170806
  14. ICY HOT [Concomitant]
     Active Substance: MENTHOL\METHYL SALICYLATE

REACTIONS (3)
  - Peripheral swelling [None]
  - Oedema peripheral [None]
  - Joint swelling [None]

NARRATIVE: CASE EVENT DATE: 20170806
